FAERS Safety Report 18517086 (Version 1)
Quarter: 2020Q4

REPORT INFORMATION
  Report Type: Other
  Country: CA (occurrence: CA)
  Receive Date: 20201118
  Receipt Date: 20201118
  Transmission Date: 20210114
  Serious: Yes (Other)
  Sender: FDA-Public Use
  Company Number: CA-LUPIN HEALTHCARE (UK) LIMITED-2020-08650

PATIENT
  Age: 87 Year
  Sex: Female

DRUGS (1)
  1. CEPHALEXIN. [Suspect]
     Active Substance: CEPHALEXIN
     Indication: LOCALISED INFECTION
     Dosage: 500 MILLIGRAM, UNK
     Route: 048

REACTIONS (5)
  - Cerebrovascular accident [Unknown]
  - Dysarthria [Unknown]
  - Pruritus [Unknown]
  - Hemiparesis [Unknown]
  - Rash [Unknown]
